FAERS Safety Report 8612284-4 (Version None)
Quarter: 2012Q3

REPORT INFORMATION
  Report Type: 
  Country: None (occurrence: None)
  Receive Date: 20120810
  Receipt Date: 20120810
  Transmission Date: 20120928
  Serious: Yes (Other)
  Sender: FDA-Public Use
  Company Number: None

PATIENT
  Age: 23 Year
  Sex: Female
  Weight: 56.6996 kg

DRUGS (1)
  1. INFLIXIMAB CENTOCOR INC [Suspect]
     Indication: CROHN'S DISEASE
     Dosage: 300MG EVERY 8 WEEKS IV DRIP
     Route: 041
     Dates: start: 20120307, end: 20120808

REACTIONS (5)
  - VOMITING [None]
  - INFUSION RELATED REACTION [None]
  - HYPERSENSITIVITY [None]
  - BLOOD PRESSURE INCREASED [None]
  - NAUSEA [None]
